FAERS Safety Report 6395106-4 (Version None)
Quarter: 2009Q4

REPORT INFORMATION
  Report Type: 
  Country: None (occurrence: None)
  Receive Date: 20091009
  Receipt Date: 20091005
  Transmission Date: 20100525
  Serious: No
  Sender: FDA-Public Use
  Company Number: B0593054A

PATIENT
  Sex: Female

DRUGS (1)
  1. RELENZA [Suspect]
     Dosage: 10MG PER DAY
     Route: 055
     Dates: start: 20090903, end: 20090910

REACTIONS (1)
  - DRUG EXPOSURE DURING PREGNANCY [None]
